FAERS Safety Report 9373775 (Version 1)
Quarter: 2013Q2

REPORT INFORMATION
  Report Type: Spontaneous
  Country: US (occurrence: US)
  Receive Date: 20130628
  Receipt Date: 20130628
  Transmission Date: 20140414
  Serious: No
  Sender: FDA-Public Use
  Company Number: US-US-EMD SERONO, INC.-7219610

PATIENT
  Age: 43 Year
  Sex: Male
  Weight: 90 kg

DRUGS (6)
  1. REBIF [Suspect]
     Indication: MULTIPLE SCLEROSIS
     Route: 058
  2. PROVIGIL [Concomitant]
     Indication: PRODUCT USED FOR UNKNOWN INDICATION
  3. CIALIS [Concomitant]
     Indication: PRODUCT USED FOR UNKNOWN INDICATION
  4. MECLIZINE                          /00072801/ [Concomitant]
     Indication: PRODUCT USED FOR UNKNOWN INDICATION
  5. GABAPENTIN [Concomitant]
     Indication: PRODUCT USED FOR UNKNOWN INDICATION
  6. ACETAMINOPHEN [Concomitant]
     Indication: PRODUCT USED FOR UNKNOWN INDICATION

REACTIONS (4)
  - Injection site anaesthesia [Unknown]
  - Injection site scar [Not Recovered/Not Resolved]
  - Depressed mood [Not Recovered/Not Resolved]
  - Injection site pain [Not Recovered/Not Resolved]
